FAERS Safety Report 23014492 (Version 1)
Quarter: 2023Q4

REPORT INFORMATION
  Report Type: Spontaneous
  Country: DE (occurrence: DE)
  Receive Date: 20231002
  Receipt Date: 20231002
  Transmission Date: 20240110
  Serious: Yes (Other)
  Sender: FDA-Public Use
  Company Number: DE-BoehringerIngelheim-2023-BI-264192

PATIENT
  Age: 55 Year
  Sex: Female

DRUGS (1)
  1. CLONIDINE [Suspect]
     Active Substance: CLONIDINE
     Indication: Product used for unknown indication

REACTIONS (6)
  - Hallucination, visual [Unknown]
  - Hallucination, auditory [Unknown]
  - Illusion [Unknown]
  - Dry mouth [Unknown]
  - Insomnia [Unknown]
  - Drug ineffective [Unknown]
